FAERS Safety Report 5863250-3 (Version None)
Quarter: 2008Q3

REPORT INFORMATION
  Report Type: 
  Country: None (occurrence: None)
  Receive Date: 20080828
  Receipt Date: 20080818
  Transmission Date: 20090109
  Serious: Yes (Other)
  Sender: FDA-Public Use
  Company Number: BR-ROCHE-582070

PATIENT
  Age: 28 Year
  Sex: Female
  Weight: 46 kg

DRUGS (10)
  1. RIVOTRIL [Suspect]
     Indication: CONVULSION
     Route: 048
     Dates: start: 19830101, end: 20080815
  2. RIVOTRIL [Suspect]
     Dosage: 4 DOSE FORM AT DAWN, 1 AND A HALF DOSE FORM EACH IN THE MORNING, NOON AND AT NIGHT
     Route: 048
     Dates: start: 20080816, end: 20080816
  3. RIVOTRIL [Suspect]
     Dosage: ONE AND A HALF TABLET IN THE  MORNING, SIX TAB LATER, FOUR  AT NIGHT
     Route: 048
     Dates: start: 20080817, end: 20080817
  4. RIVOTRIL [Suspect]
     Route: 048
     Dates: start: 20080818
  5. OXOMEMAZINE [Concomitant]
     Dosage: STRENGTH: HALF CUP/DAY; TAKEN OCCASIONALLY
     Route: 048
  6. POTASSIUM CHLORIDE [Concomitant]
     Dosage: TAKEN OCCASIONALLY
  7. IODIDE NOS [Concomitant]
     Dosage: TAKEN OCCASIONALLY
  8. SODIUM BENZOATE [Concomitant]
     Dosage: TAKEN OCCASIONALLY
  9. GUAIFENESIN [Concomitant]
     Dosage: TAKEN OCCASIONALLY
  10. IPECACUANHA [Concomitant]
     Dosage: TAKEN OCCASIONALLY

REACTIONS (2)
  - CONVULSION [None]
  - RESPIRATORY ARREST [None]
